FAERS Safety Report 6613212-3 (Version None)
Quarter: 2010Q1

REPORT INFORMATION
  Report Type: 
  Country: None (occurrence: None)
  Receive Date: 20100304
  Receipt Date: 20100219
  Transmission Date: 20100710
  Serious: Yes (Hospitalization)
  Sender: FDA-Public Use
  Company Number: US-JNJFOC-20100210360

PATIENT
  Age: 4 Year
  Sex: Female

DRUGS (16)
  1. TYLENOL [Suspect]
     Route: 048
  2. TYLENOL [Suspect]
     Indication: ACCIDENTAL EXPOSURE
     Dosage: UNKNOWN
     Route: 048
  3. IMODIUM [Suspect]
     Route: 048
  4. IMODIUM [Suspect]
     Indication: ACCIDENTAL EXPOSURE
     Dosage: UNKNOWN
     Route: 048
  5. THERAFLU [Suspect]
     Indication: ABDOMINAL PAIN
     Route: 048
  6. TRIAMINIC FLU COUGH AND FEVER [Suspect]
     Indication: ABDOMINAL PAIN
     Route: 048
  7. DIUREX [Suspect]
     Indication: ACCIDENTAL EXPOSURE
     Route: 048
  8. WELLBUTRIN [Suspect]
     Indication: ACCIDENTAL EXPOSURE
     Route: 048
  9. ASPIRIN [Suspect]
     Indication: ACCIDENTAL EXPOSURE
     Route: 048
  10. DULCOLAX [Suspect]
     Indication: ACCIDENTAL EXPOSURE
     Route: 048
  11. ZANTAC [Suspect]
     Indication: ACCIDENTAL EXPOSURE
     Route: 048
  12. NEXIUM [Suspect]
     Indication: ACCIDENTAL EXPOSURE
     Route: 048
  13. NASAL DECONGESTANTS FOR SYSTEMIC USE [Suspect]
     Indication: ACCIDENTAL EXPOSURE
     Route: 048
  14. EYE DROPS [Suspect]
     Indication: ACCIDENTAL EXPOSURE
     Route: 048
  15. ALL OTHER NON-THERAPEUTIC PRODUCTS [Suspect]
     Indication: ACCIDENTAL EXPOSURE
     Route: 048
  16. ANTIBIOTIC CREAM [Suspect]
     Indication: ACCIDENTAL EXPOSURE
     Route: 048

REACTIONS (12)
  - ABDOMINAL PAIN [None]
  - ACCIDENTAL DRUG INTAKE BY CHILD [None]
  - AGITATION [None]
  - ATAXIA [None]
  - CONFUSIONAL STATE [None]
  - CONVULSION [None]
  - HALLUCINATION [None]
  - HYPERTENSION [None]
  - MYDRIASIS [None]
  - NAUSEA [None]
  - TACHYCARDIA [None]
  - TREMOR [None]
